FAERS Safety Report 6635006-5 (Version None)
Quarter: 2010Q1

REPORT INFORMATION
  Report Type: 
  Country: None (occurrence: None)
  Receive Date: 20100315
  Receipt Date: 20100305
  Transmission Date: 20100710
  Serious: Yes (Hospitalization)
  Sender: FDA-Public Use
  Company Number: FR-ABBOTT-10P-056-0630457-01

PATIENT
  Age: 48 Year
  Sex: Female
  Weight: 67 kg

DRUGS (5)
  1. HUMIRA [Suspect]
     Indication: CROHN'S DISEASE
     Route: 058
     Dates: start: 20080903
  2. HUMIRA [Suspect]
  3. VASTAREL [Concomitant]
     Indication: DEAFNESS UNILATERAL
     Dates: start: 20070901
  4. VASTAREL [Concomitant]
     Indication: VERTIGO
  5. PROPRANOLOL HYDROCHLORIDE [Concomitant]
     Indication: TACHYCARDIA
     Dates: start: 20080101

REACTIONS (2)
  - MUSCULAR WEAKNESS [None]
  - MYALGIA [None]
